FAERS Safety Report 4891283-2 (Version None)
Quarter: 2006Q1

REPORT INFORMATION
  Report Type: 
  Country: None (occurrence: None)
  Receive Date: 20060123
  Receipt Date: 20060109
  Transmission Date: 20060701
  Serious: Yes (Other)
  Sender: FDA-Public Use
  Company Number: 6019050

PATIENT
  Age: 75 Year
  Sex: Female

DRUGS (1)
  1. CONCOR COR [Suspect]
     Indication: ARRHYTHMIA
     Dosage: 1,2500 MG (1,25 MG, 1 IN 1 D) ORAL
     Route: 048
     Dates: start: 20040101, end: 20051201

REACTIONS (8)
  - ARTHRALGIA [None]
  - BACK PAIN [None]
  - BEDRIDDEN [None]
  - FATIGUE [None]
  - HYPERTONIA [None]
  - MUSCLE FATIGUE [None]
  - MUSCLE SPASMS [None]
  - MYALGIA [None]
